FAERS Safety Report 12319214 (Version 1)
Quarter: 2016Q2

REPORT INFORMATION
  Report Type: Spontaneous
  Country: US (occurrence: US)
  Receive Date: 20160429
  Receipt Date: 20160429
  Transmission Date: 20160815
  Serious: No
  Sender: FDA-Public Use
  Company Number: US-ROCHE-1634869

PATIENT
  Sex: Male

DRUGS (8)
  1. GLIMEPIRID [Concomitant]
     Active Substance: GLIMEPIRIDE
  2. LANTUS [Concomitant]
     Active Substance: INSULIN GLARGINE
  3. TYLENOL [Concomitant]
     Active Substance: ACETAMINOPHEN
  4. METFORMIN [Concomitant]
     Active Substance: METFORMIN HYDROCHLORIDE
     Route: 065
  5. ESBRIET [Suspect]
     Active Substance: PIRFENIDONE
     Indication: IDIOPATHIC PULMONARY FIBROSIS
     Route: 048
     Dates: start: 20150624
  6. FLEXERIL [Concomitant]
     Active Substance: CYCLOBENZAPRINE HYDROCHLORIDE
  7. TRICOR [Concomitant]
     Active Substance: FENOFIBRATE
  8. VITAMIN B12 [Concomitant]
     Active Substance: CYANOCOBALAMIN

REACTIONS (2)
  - Diarrhoea [Unknown]
  - Gastric disorder [Unknown]
